FAERS Safety Report 7732879-X (Version None)
Quarter: 2011Q3

REPORT INFORMATION
  Report Type: 
  Country: None (occurrence: None)
  Receive Date: 20110901
  Receipt Date: 20110819
  Transmission Date: 20111222
  Serious: Yes (Hospitalization)
  Sender: FDA-Public Use
  Company Number: JP-2011-11291

PATIENT
  Sex: Female

DRUGS (1)
  1. SAMSCA [Suspect]
     Dosage: 15 MG MILLIGRAM(S), QD, ORAL
     Route: 048

REACTIONS (2)
  - DECREASED ACTIVITY [None]
  - INTERSTITIAL LUNG DISEASE [None]
